FAERS Safety Report 8268614-9 (Version None)
Quarter: 2012Q2

REPORT INFORMATION
  Report Type: 
  Country: None (occurrence: None)
  Receive Date: 20120409
  Receipt Date: 20120403
  Transmission Date: 20120825
  Serious: Yes (Other)
  Sender: FDA-Public Use
  Company Number: JP-VERTEX PHARMACEUTICALS INC.-AE-2012-004507

PATIENT
  Age: 61 Year
  Sex: Female

DRUGS (8)
  1. PEGINTERFERON [Concomitant]
     Indication: HEPATITIS C
     Dates: start: 20111213
  2. TELAVIC (TELAPREVIR) [Suspect]
     Indication: HEPATITIS C
     Route: 048
     Dates: start: 20111221, end: 20111226
  3. TELAVIC (TELAPREVIR) [Suspect]
     Route: 048
     Dates: start: 20120228
  4. REBETOL [Concomitant]
     Indication: HEPATITIS C
     Dates: start: 20111213, end: 20120117
  5. REBETOL [Concomitant]
     Dates: start: 20120117
  6. TELAVIC (TELAPREVIR) [Suspect]
     Dates: start: 20111226, end: 20120227
  7. URSO 250 [Concomitant]
  8. ZOLPIDEM [Concomitant]

REACTIONS (1)
  - WHITE BLOOD CELL COUNT DECREASED [None]
